FAERS Safety Report 4374177-0 (Version None)
Quarter: 2004Q2

REPORT INFORMATION
  Report Type: 
  Country: None (occurrence: None)
  Receive Date: 20040607
  Receipt Date: 20040528
  Transmission Date: 20050107
  Serious: Yes (Hospitalization)
  Sender: FDA-Public Use
  Company Number: CM-MERCK-0406USA00137

PATIENT
  Age: 30 Year
  Sex: Male

DRUGS (1)
  1. STROMECTOL [Suspect]
     Route: 048
     Dates: start: 20040418, end: 20040418

REACTIONS (8)
  - APHASIA [None]
  - ARTHRALGIA [None]
  - BACK PAIN [None]
  - COMA [None]
  - FAECAL INCONTINENCE [None]
  - HEADACHE [None]
  - PYREXIA [None]
  - URINARY INCONTINENCE [None]
